FAERS Safety Report 9769112 (Version 5)
Quarter: 2014Q1

REPORT INFORMATION
  Report Type: Spontaneous
  Country: IT (occurrence: None)
  Receive Date: 20131216
  Receipt Date: 20140226
  Transmission Date: 20141002
  Serious: Yes (Hospitalization)
  Sender: FDA-Public Use
  Company Number: AUR-APL-2013-10274

PATIENT
  Age: 80 Year
  Sex: Male
  Weight: 68 kg

DRUGS (11)
  1. BISOPROLOL [Suspect]
     Indication: MYOCARDIAL ISCHAEMIA
     Dosage: 2.5 MG (2.5 MG, 1 IN 1 D), ORAL
     Route: 048
     Dates: start: 20130920, end: 20131125
  2. IVABRADINE [Suspect]
     Indication: MYOCARDIAL ISCHAEMIA
     Dosage: 10 MG (10 MG, 1 IN 1 D), ORAL
     Route: 048
     Dates: start: 20130920, end: 20131125
  3. RANOLAZINE [Suspect]
     Indication: MYOCARDIAL ISCHAEMIA
     Route: 048
     Dates: start: 20130920, end: 20131125
  4. CARDIOASPIRIN [Concomitant]
  5. AZOPT [Concomitant]
  6. RAMIPRIL [Concomitant]
  7. CLOPIDOGREL (CLOPIDOGREL) [Concomitant]
  8. PANTOPRAZOLE SODIUM [Concomitant]
  9. ATORVASTATIN CALCIUM TRIHYDRATE [Concomitant]
  10. TAMSULOSIN HYDROCHLORIDE [Concomitant]
  11. NITROGLYCERIN [Concomitant]

REACTIONS (3)
  - Sinus bradycardia [None]
  - Cardiac hypertrophy [None]
  - Left ventricular failure [None]
